FAERS Safety Report 19373272 (Version 1)
Quarter: 2021Q2

REPORT INFORMATION
  Report Type: Other
  Country: US (occurrence: US)
  Receive Date: 20210604
  Receipt Date: 20210604
  Transmission Date: 20210717
  Serious: Yes (Hospitalization)
  Sender: FDA-Public Use
  Company Number: US-ROCHE-2838490

PATIENT
  Sex: Male

DRUGS (4)
  1. INFLECTRA (UNITED STATES) [Concomitant]
  2. ACTEMRA [Suspect]
     Active Substance: TOCILIZUMAB
     Indication: IMMUNOSUPPRESSION
     Dosage: INJECT 162MG (0.9ML) SUBCUTANEOUSLY EVERY 14 DAY(S
     Route: 058
  3. ACTEMRA [Suspect]
     Active Substance: TOCILIZUMAB
  4. ACTEMRA [Suspect]
     Active Substance: TOCILIZUMAB

REACTIONS (2)
  - Accident [Unknown]
  - Off label use [Unknown]
